FAERS Safety Report 8159584-2 (Version None)
Quarter: 2012Q1

REPORT INFORMATION
  Report Type: 
  Country: None (occurrence: None)
  Receive Date: 20120223
  Receipt Date: 20120209
  Transmission Date: 20120608
  Serious: Yes (Hospitalization, Other)
  Sender: FDA-Public Use
  Company Number: GB-ROCHE-1039029

PATIENT
  Sex: Male
  Weight: 61 kg

DRUGS (2)
  1. MABTHERA [Suspect]
     Indication: RHEUMATOID ARTHRITIS
     Dosage: LAST DSOE PRIOR TO SAE 07 SEP 2011
     Dates: start: 20090324
  2. METHOTREXATE [Concomitant]

REACTIONS (3)
  - FALL [None]
  - UNEVALUABLE EVENT [None]
  - HALLUCINATION [None]
